FAERS Safety Report 9787734 (Version 1)
Quarter: 2013Q4

REPORT INFORMATION
  Report Type: Spontaneous
  Country: IT (occurrence: IT)
  Receive Date: 20131230
  Receipt Date: 20131230
  Transmission Date: 20140711
  Serious: Yes (Hospitalization)
  Sender: FDA-Public Use
  Company Number: IT-TEVA-452805ISR

PATIENT
  Age: 79 Year
  Sex: Female
  Weight: 62 kg

DRUGS (13)
  1. VINCRISTINA TEVA ITALIA [Suspect]
     Indication: NON-HODGKIN^S LYMPHOMA
     Dosage: 1.5 MILLIGRAM DAILY;
     Route: 042
     Dates: start: 20120928, end: 20120928
  2. VINCRISTINA TEVA ITALIA [Suspect]
     Dates: start: 20120616, end: 20120813
  3. ENDOXAN BAXTER [Suspect]
     Indication: NON-HODGKIN^S LYMPHOMA
     Dosage: 1110 MILLIGRAM DAILY; POWDER FOR SOLUTION FOR INJECTION
     Route: 040
     Dates: start: 20120928, end: 20120928
  4. ENDOXAN BAXTER [Suspect]
     Dates: start: 20120626, end: 20120813
  5. MABTHERA [Suspect]
     Indication: NON-HODGKIN^S LYMPHOMA
     Dosage: 630 MILLIGRAM DAILY;
     Route: 042
     Dates: start: 20120928, end: 20120928
  6. MABTHERA [Suspect]
     Dates: start: 20120625, end: 20120813
  7. DELTACORTENE [Suspect]
     Indication: NON-HODGKIN^S LYMPHOMA
     Dosage: 50 MILLIGRAM DAILY;
     Route: 048
     Dates: start: 20120929, end: 20121002
  8. DELTACORTENE [Suspect]
     Dates: start: 20120627, end: 20120817
  9. ZOFRAN [Concomitant]
     Indication: PROPHYLAXIS OF NAUSEA AND VOMITING
     Dosage: 8 MILLIGRAM DAILY;
     Route: 042
     Dates: start: 20120928, end: 20120928
  10. DESAMETASONE FOSFATO HOSPIRA [Concomitant]
     Indication: PROPHYLAXIS OF NAUSEA AND VOMITING
     Dosage: 8 MILLIGRAM DAILY;
     Route: 040
     Dates: start: 20130928, end: 20130928
  11. NEULASTA 6 MG [Concomitant]
     Indication: CHEMOTHERAPY CYTOKINE PROPHYLAXIS
     Dosage: 1 DOSAGE FORMS DAILY;
     Route: 058
     Dates: start: 20120820, end: 20120928
  12. LANCTUS [Concomitant]
     Indication: DIABETES MELLITUS
     Dosage: 12 DOSAGE FORMS DAILY;
     Route: 058
     Dates: start: 20120824, end: 20121109
  13. APIDRA [Concomitant]
     Indication: DIABETES MELLITUS
     Dosage: 24 DOSAGE FORMS DAILY;
     Route: 058
     Dates: start: 20120824, end: 20121109

REACTIONS (3)
  - Anaemia [Recovered/Resolved]
  - Leukopenia [Recovered/Resolved]
  - Pneumonitis [Recovered/Resolved]
